FAERS Safety Report 9854136 (Version 36)
Quarter: 2019Q2

REPORT INFORMATION
  Report Type: Report from Study
  Country: CA (occurrence: CA)
  Receive Date: 20140129
  Receipt Date: 20190618
  Transmission Date: 20190711
  Serious: Yes (Other)
  Sender: FDA-Public Use
  Company Number: CA-ROCHE-1154690

PATIENT
  Age: 46 Year
  Sex: Female
  Weight: 77 kg

DRUGS (14)
  1. ACTEMRA [Suspect]
     Active Substance: TOCILIZUMAB
     Route: 042
     Dates: start: 201312
  2. ACTEMRA [Suspect]
     Active Substance: TOCILIZUMAB
     Route: 042
     Dates: start: 20150105
  3. PLAQUENIL [Concomitant]
     Active Substance: HYDROXYCHLOROQUINE SULFATE
  4. ACTEMRA [Suspect]
     Active Substance: TOCILIZUMAB
     Route: 042
  5. POTASSIUM [Concomitant]
     Active Substance: POTASSIUM
  6. CIMZIA [Concomitant]
     Active Substance: CERTOLIZUMAB PEGOL
     Route: 065
  7. ACTEMRA [Suspect]
     Active Substance: TOCILIZUMAB
     Indication: RHEUMATOID ARTHRITIS
     Route: 042
     Dates: start: 20121107
  8. VITAMIN B6 [Concomitant]
     Active Substance: PYRIDOXINE HYDROCHLORIDE
  9. ESOMEPRAZOLE. [Concomitant]
     Active Substance: ESOMEPRAZOLE MAGNESIUM
     Route: 065
  10. VITAMIN B6 [Concomitant]
     Active Substance: PYRIDOXINE HYDROCHLORIDE
  11. ACTEMRA [Suspect]
     Active Substance: TOCILIZUMAB
     Route: 042
     Dates: start: 20140916
  12. ACTEMRA [Suspect]
     Active Substance: TOCILIZUMAB
     Route: 042
     Dates: start: 20160205
  13. ACTEMRA [Suspect]
     Active Substance: TOCILIZUMAB
     Route: 042
     Dates: start: 20161213
  14. NAPROXEN. [Concomitant]
     Active Substance: NAPROXEN
     Dosage: IN SUMMER ONLY
     Route: 065

REACTIONS (43)
  - Abdominal pain [Not Recovered/Not Resolved]
  - Irritable bowel syndrome [Not Recovered/Not Resolved]
  - Joint injury [Recovered/Resolved]
  - Cystitis [Not Recovered/Not Resolved]
  - Pyrexia [Recovered/Resolved]
  - Oropharyngeal pain [Not Recovered/Not Resolved]
  - Blood pressure increased [Unknown]
  - Blood pressure systolic increased [Unknown]
  - Migraine [Unknown]
  - Joint swelling [Unknown]
  - Rheumatoid arthritis [Recovered/Resolved]
  - Arthralgia [Not Recovered/Not Resolved]
  - Disability assessment scale score increased [Recovering/Resolving]
  - Haemorrhoids [Unknown]
  - Headache [Recovered/Resolved]
  - Arthropod bite [Not Recovered/Not Resolved]
  - Peripheral swelling [Recovering/Resolving]
  - Back injury [Recovering/Resolving]
  - Skin irritation [Not Recovered/Not Resolved]
  - Arthritis [Recovered/Resolved]
  - Amenorrhoea [Not Recovered/Not Resolved]
  - Cough [Not Recovered/Not Resolved]
  - Blood pressure diastolic abnormal [Unknown]
  - Gout [Recovered/Resolved]
  - Nasopharyngitis [Recovered/Resolved]
  - Oropharyngeal pain [Unknown]
  - Body temperature decreased [Unknown]
  - Nasal congestion [Recovering/Resolving]
  - Nasopharyngitis [Recovered/Resolved]
  - Back pain [Not Recovered/Not Resolved]
  - Limb injury [Recovered/Resolved]
  - Fatigue [Not Recovered/Not Resolved]
  - Weight increased [Unknown]
  - Influenza [Recovered/Resolved]
  - Haematochezia [Not Recovered/Not Resolved]
  - Blood cholesterol increased [Unknown]
  - Chest pain [Not Recovered/Not Resolved]
  - Contusion [Unknown]
  - Joint stiffness [Recovering/Resolving]
  - Pain [Unknown]
  - Fall [Unknown]
  - Infusion related reaction [Unknown]
  - Cough [Recovered/Resolved]

NARRATIVE: CASE EVENT DATE: 20121107
